FAERS Safety Report 8455466-7 (Version None)
Quarter: 2012Q2

REPORT INFORMATION
  Report Type: 
  Country: None (occurrence: None)
  Receive Date: 20120613
  Receipt Date: 20120529
  Transmission Date: 20120825
  Serious: Yes (Hospitalization)
  Sender: FDA-Public Use
  Company Number: B0806708A

PATIENT
  Age: 41 Year
  Sex: Female

DRUGS (4)
  1. PROPRANOLOL HYDROCHLORIDE [Suspect]
  2. OLANZAPINE [Suspect]
  3. VENLAFAXINE HYDROCHLORIDE [Suspect]
  4. QUETIAPINE FUMARATE [Suspect]

REACTIONS (8)
  - PNEUMONIA ASPIRATION [None]
  - RHABDOMYOLYSIS [None]
  - PARALYSIS FLACCID [None]
  - ACUTE RESPIRATORY DISTRESS SYNDROME [None]
  - CONVULSION [None]
  - NEUROLEPTIC MALIGNANT SYNDROME [None]
  - LEUKOENCEPHALOPATHY [None]
  - OVERDOSE [None]
